FAERS Safety Report 7892462-2 (Version None)
Quarter: 2011Q4

REPORT INFORMATION
  Report Type: 
  Country: None (occurrence: None)
  Receive Date: 20111026
  Receipt Date: 20111010
  Transmission Date: 20120403
  Serious: Yes (Life-Threatening)
  Sender: FDA-Public Use
  Company Number: LIT-047-11-IN

PATIENT
  Age: 2 Year
  Sex: Female

DRUGS (1)
  1. GENERIC-IG (IV) (HUMAN NORMAL IMMUNOGLOBULIN FOR INTRAVENOUS BATCH # U [Suspect]
     Indication: GUILLAIN-BARRE SYNDROME
     Dosage: 400 MG/KG -1 X 1/D INTRAVENOUS (NOT OTHERWISE SPECIFIED)
     Route: 042

REACTIONS (5)
  - HYPOTENSION [None]
  - RESPIRATORY DISTRESS [None]
  - IRRITABILITY [None]
  - TRANSFUSION-RELATED ACUTE LUNG INJURY [None]
  - PULMONARY OEDEMA [None]
